FAERS Safety Report 6853896-8 (Version None)
Quarter: 2010Q3

REPORT INFORMATION
  Report Type: 
  Country: None (occurrence: None)
  Receive Date: 20100717
  Receipt Date: 20080119
  Transmission Date: 20110219
  Serious: No
  Sender: FDA-Public Use
  Company Number: US-PFIZER INC-2007105615

PATIENT
  Sex: Male
  Weight: 64 kg

DRUGS (1)
  1. CHANTIX [Suspect]
     Indication: SMOKING CESSATION THERAPY
     Dates: start: 20071203, end: 20071211

REACTIONS (6)
  - DEPENDENCE [None]
  - DIZZINESS [None]
  - FACIAL PAIN [None]
  - MIGRAINE [None]
  - MUSCLE SPASMS [None]
  - VOMITING [None]
